FAERS Safety Report 4496915-9 (Version None)
Quarter: 2004Q3

REPORT INFORMATION
  Report Type: 
  Country: None (occurrence: None)
  Receive Date: 20040928
  Receipt Date: 20040721
  Transmission Date: 20050211
  Serious: No
  Sender: FDA-Public Use
  Company Number: 04P-163-0267687-00

PATIENT
  Age: 61 Year
  Sex: Female
  Weight: 81.6475 kg

DRUGS (5)
  1. HUMIRA [Suspect]
     Indication: RHEUMATOID ARTHRITIS
     Dosage: 40 MG, 1 IN 2 WK, SUBCUTANEOUS
     Route: 058
     Dates: start: 20040609, end: 20040721
  2. METHOTREXATE SODIUM [Concomitant]
  3. FLUOXETINE HYDROCHLORIDE [Concomitant]
  4. FOLIC ACID [Concomitant]
  5. PROPACET 100 [Concomitant]

REACTIONS (8)
  - HEADACHE [None]
  - INJECTION SITE BURNING [None]
  - INJECTION SITE INDURATION [None]
  - INJECTION SITE PRURITUS [None]
  - INJECTION SITE RASH [None]
  - INJECTION SITE VESICLES [None]
  - INJECTION SITE WARMTH [None]
  - TOOTHACHE [None]
